FAERS Safety Report 5206454-5 (Version None)
Quarter: 2006Q4

REPORT INFORMATION
  Report Type: 
  Country: None (occurrence: None)
  Receive Date: 20061026
  Receipt Date: 20060915
  Transmission Date: 20070319
  Serious: Yes (Other)
  Sender: FDA-Public Use
  Company Number: 2006112834

PATIENT
  Age: 71 Year
  Sex: Female
  Weight: 81.1939 kg

DRUGS (9)
  1. LYRICA [Suspect]
     Indication: OSTEOPOROSIS
     Dosage: 50 MG (50 MG, 1 IN 1 D)
     Dates: start: 20060909
  2. HUMALOG [Concomitant]
  3. PREVACID [Concomitant]
  4. RIBELFAN (AMINOPHENAZONE, NOSCAPINE, QUININE, SULFAMETHOXYPYRIDAZINE) [Concomitant]
  5. ASCRIPTIN (ACETYLSALICYLIC ACID, ALUMINIUM HYDROXIDE, MAGNESIUM HYDROX [Concomitant]
  6. ACCUPRIL [Concomitant]
  7. TRICOR [Concomitant]
  8. LIPITOR [Concomitant]
  9. ACTOS [Concomitant]

REACTIONS (2)
  - HYPERHIDROSIS [None]
  - HYPOGLYCAEMIA [None]
